FAERS Safety Report 12269982 (Version 15)
Quarter: 2021Q2

REPORT INFORMATION
  Report Type: Other
  Country: CA (occurrence: CA)
  Receive Date: 20160415
  Receipt Date: 20210508
  Transmission Date: 20210716
  Serious: Yes (Other)
  Sender: FDA-Public Use
  Company Number: CA-ROCHE-1733450

PATIENT
  Age: 61 Year
  Sex: Male
  Weight: 72.9 kg

DRUGS (9)
  1. ESBRIET [Suspect]
     Active Substance: PIRFENIDONE
     Route: 048
  2. ESBRIET [Suspect]
     Active Substance: PIRFENIDONE
     Route: 048
     Dates: start: 20160224
  3. ESBRIET [Suspect]
     Active Substance: PIRFENIDONE
     Route: 048
     Dates: start: 2017
  4. ESBRIET [Suspect]
     Active Substance: PIRFENIDONE
     Indication: IDIOPATHIC PULMONARY FIBROSIS
     Route: 048
     Dates: start: 20160210
  5. VENTOLIN [Concomitant]
     Active Substance: ALBUTEROL SULFATE
  6. AVAMYS [Concomitant]
     Active Substance: FLUTICASONE FUROATE
  7. ATROVENT [Concomitant]
     Active Substance: IPRATROPIUM BROMIDE
  8. ESBRIET [Suspect]
     Active Substance: PIRFENIDONE
     Route: 048
     Dates: start: 20160217
  9. SALBUTAMOL [Concomitant]
     Active Substance: ALBUTEROL

REACTIONS (11)
  - Weight decreased [Unknown]
  - Wheezing [Recovered/Resolved]
  - Libido decreased [Not Recovered/Not Resolved]
  - Pulmonary function test abnormal [Unknown]
  - Dyspepsia [Recovering/Resolving]
  - Drug ineffective [Unknown]
  - Pulmonary fibrosis [Unknown]
  - Abdominal discomfort [Recovering/Resolving]
  - Dyspnoea [Recovering/Resolving]
  - Chest discomfort [Unknown]
  - Drug hypersensitivity [Not Recovered/Not Resolved]

NARRATIVE: CASE EVENT DATE: 20161220
